FAERS Safety Report 11467831 (Version 1)
Quarter: 2015Q3

REPORT INFORMATION
  Report Type: Other
  Country: MX (occurrence: MX)
  Receive Date: 20150908
  Receipt Date: 20150908
  Transmission Date: 20151125
  Serious: Yes (Other)
  Sender: FDA-Public Use
  Company Number: MX-SHIRE-MX201511278

PATIENT
  Age: 6 Year
  Sex: Male
  Weight: 27 kg

DRUGS (3)
  1. HYDROCORTISONE. [Concomitant]
     Active Substance: HYDROCORTISONE
     Indication: PRODUCT USED FOR UNKNOWN INDICATION
     Dosage: 200 MG, 1X/WEEK
     Route: 042
  2. ELAPRASE [Suspect]
     Active Substance: IDURSULFASE
     Indication: PRODUCT USED FOR UNKNOWN INDICATION
     Dosage: UNK, 1X/WEEK
     Route: 041
  3. DIPHENHYDRAMINE. [Suspect]
     Active Substance: DIPHENHYDRAMINE
     Indication: PREMEDICATION
     Dosage: 40 MG, 1X/WEEK
     Route: 042
     Dates: start: 20150828, end: 20150828

REACTIONS (4)
  - Anxiety [Recovered/Resolved]
  - Aphasia [Recovered/Resolved]
  - Tremor [Recovered/Resolved]
  - Blindness transient [Recovered/Resolved]

NARRATIVE: CASE EVENT DATE: 20150828
